FAERS Safety Report 19302266 (Version 20)
Quarter: 2025Q2

REPORT INFORMATION
  Report Type: Report from Study
  Country: US (occurrence: US)
  Receive Date: 20210525
  Receipt Date: 20250620
  Transmission Date: 20250717
  Serious: Yes (Other)
  Sender: TAKEDA
  Company Number: US-TAKEDA-2021TUS031740

PATIENT
  Age: 34 Year
  Sex: Female
  Weight: 90 kg

DRUGS (57)
  1. HUMAN IMMUNOGLOBULIN G [Suspect]
     Active Substance: HUMAN IMMUNOGLOBULIN G
     Indication: Immunodeficiency common variable
     Dosage: 17 GRAM, 1/WEEK
     Dates: start: 20210527
  2. HUMAN IMMUNOGLOBULIN G [Suspect]
     Active Substance: HUMAN IMMUNOGLOBULIN G
  3. CUVITRU [Suspect]
     Active Substance: HUMAN IMMUNOGLOBULIN G
     Indication: Immunodeficiency common variable
     Dosage: 20 GRAM, 1/WEEK
     Dates: start: 20210527
  4. CUVITRU [Suspect]
     Active Substance: HUMAN IMMUNOGLOBULIN G
     Dosage: 22 GRAM, 1/WEEK
  5. CUVITRU [Suspect]
     Active Substance: HUMAN IMMUNOGLOBULIN G
     Dosage: 23 GRAM, 1/WEEK
  6. DIFLUCAN [Concomitant]
     Active Substance: FLUCONAZOLE
  7. CETIRIZINE [Concomitant]
     Active Substance: CETIRIZINE HYDROCHLORIDE
  8. PANTOPRAZOLE [Concomitant]
     Active Substance: PANTOPRAZOLE
  9. MELOXICAM [Concomitant]
     Active Substance: MELOXICAM
  10. ALLEGRA ALLERGY [Concomitant]
     Active Substance: FEXOFENADINE HYDROCHLORIDE
  11. EPIPEN [Concomitant]
     Active Substance: EPINEPHRINE
  12. PREMARIN [Concomitant]
     Active Substance: ESTROGENS, CONJUGATED
  13. HYDROXYZINE [Concomitant]
     Active Substance: HYDROXYZINE HYDROCHLORIDE
  14. IRON [Concomitant]
     Active Substance: IRON
  15. BUDESONIDE [Concomitant]
     Active Substance: BUDESONIDE
  16. PEPCID [Concomitant]
     Active Substance: FAMOTIDINE
  17. ONDANSETRON [Concomitant]
     Active Substance: ONDANSETRON
  18. SPIRIVA RESPIMAT [Concomitant]
     Active Substance: TIOTROPIUM BROMIDE
  19. BACLOFEN [Concomitant]
     Active Substance: BACLOFEN
  20. VANOS [Concomitant]
     Active Substance: FLUOCINONIDE
  21. OPTIVAR [Concomitant]
     Active Substance: AZELASTINE HYDROCHLORIDE
  22. ZOLOFT [Concomitant]
     Active Substance: SERTRALINE HYDROCHLORIDE
  23. AZELASTINE [Concomitant]
     Active Substance: AZELASTINE
  24. HYDROCORTISONE [Concomitant]
     Active Substance: HYDROCORTISONE
  25. ELIDEL [Concomitant]
     Active Substance: PIMECROLIMUS
  26. PYRIDOXINE HYDROCHLORIDE [Concomitant]
     Active Substance: PYRIDOXINE HYDROCHLORIDE
  27. CLOBETASOL [Concomitant]
     Active Substance: CLOBETASOL
  28. GABAPENTIN [Concomitant]
     Active Substance: GABAPENTIN
  29. SOOLANTRA [Concomitant]
     Active Substance: IVERMECTIN
  30. KETOCONAZOLE [Concomitant]
     Active Substance: KETOCONAZOLE
  31. NASACORT [Concomitant]
     Active Substance: TRIAMCINOLONE ACETONIDE
  32. FISH OIL [Concomitant]
     Active Substance: FISH OIL
  33. VITAMIN D2 [Concomitant]
     Active Substance: ERGOCALCIFEROL
  34. MAGNESIUM OXIDE [Concomitant]
     Active Substance: MAGNESIUM OXIDE
  35. PLAQUENIL [Concomitant]
     Active Substance: HYDROXYCHLOROQUINE SULFATE
  36. DOXYCYCLINE [Concomitant]
     Active Substance: DOXYCYCLINE
  37. TRAMADOL [Concomitant]
     Active Substance: TRAMADOL
  38. TRAZODONE [Concomitant]
     Active Substance: TRAZODONE HYDROCHLORIDE
  39. ACETAMINOPHEN [Concomitant]
     Active Substance: ACETAMINOPHEN
  40. DIPHENHYDRAMINE [Concomitant]
     Active Substance: DIPHENHYDRAMINE
  41. EPINEPHRINE [Concomitant]
     Active Substance: EPINEPHRINE
  42. Lmx [Concomitant]
  43. MONTELUKAST [Concomitant]
     Active Substance: MONTELUKAST
  44. FLUOCINOLONE ACETONIDE [Concomitant]
     Active Substance: FLUOCINOLONE ACETONIDE
  45. BUSPIRONE HCL [Concomitant]
     Active Substance: BUSPIRONE HYDROCHLORIDE
  46. AZELASTINE HYDROCHLORIDE [Concomitant]
     Active Substance: AZELASTINE HYDROCHLORIDE
  47. CETIRIZINE HCL [Concomitant]
     Active Substance: CETIRIZINE HYDROCHLORIDE
  48. PANTOPRAZOLE SODIUM [Concomitant]
     Active Substance: PANTOPRAZOLE SODIUM
  49. HYDROXYZINE HYDROCHLORIDE [Concomitant]
     Active Substance: HYDROXYZINE HYDROCHLORIDE
  50. ONDANSETRON [Concomitant]
     Active Substance: ONDANSETRON
  51. MONTELUKAST SODIUM [Concomitant]
     Active Substance: MONTELUKAST SODIUM
  52. DOXYCYCLINE HYCLATE [Concomitant]
     Active Substance: DOXYCYCLINE HYCLATE
  53. TRAMADOL HCL [Concomitant]
     Active Substance: TRAMADOL HYDROCHLORIDE
  54. TRAZODONE HCL [Concomitant]
     Active Substance: TRAZODONE HYDROCHLORIDE
  55. PROAIR HFA [Concomitant]
     Active Substance: ALBUTEROL SULFATE
  56. VITAMIN D [Concomitant]
     Active Substance: VITAMIN D NOS
  57. DIPHENHYDRAMINE HYDROCHLORIDE [Concomitant]
     Active Substance: DIPHENHYDRAMINE HYDROCHLORIDE

REACTIONS (13)
  - COVID-19 pneumonia [Unknown]
  - Subclavian vein thrombosis [Unknown]
  - Deep vein thrombosis [Unknown]
  - Meningitis aseptic [Unknown]
  - Gastrointestinal viral infection [Unknown]
  - Staphylococcal infection [Unknown]
  - Urinary tract infection [Unknown]
  - Product dose omission issue [Unknown]
  - Product distribution issue [Unknown]
  - Upper respiratory tract infection [Unknown]
  - Sinusitis [Not Recovered/Not Resolved]
  - Influenza [Unknown]
  - Headache [Unknown]

NARRATIVE: CASE EVENT DATE: 20210624
